FAERS Safety Report 8084625-0 (Version None)
Quarter: 2012Q1

REPORT INFORMATION
  Report Type: 
  Country: None (occurrence: None)
  Receive Date: 20120128
  Receipt Date: 20110328
  Transmission Date: 20120608
  Serious: No
  Sender: FDA-Public Use
  Company Number: US-ABBOTT-11P-163-0715336-00

PATIENT
  Age: 56 Year
  Sex: Male
  Weight: 65.83 kg

DRUGS (4)
  1. HUMIRA [Suspect]
     Indication: PSORIATIC ARTHROPATHY
     Dates: start: 20100901, end: 20110201
  2. HUMIRA [Suspect]
  3. UNKNOWN STEROID MEDICATION [Concomitant]
     Indication: SINUSITIS
     Dates: start: 20110201, end: 20110201
  4. METHOTREXATE [Concomitant]
     Indication: PSORIATIC ARTHROPATHY

REACTIONS (4)
  - RHINORRHOEA [None]
  - LIVER FUNCTION TEST ABNORMAL [None]
  - COUGH [None]
  - SINUSITIS [None]
